FAERS Safety Report 15975982 (Version 1)
Quarter: 2019Q1

REPORT INFORMATION
  Report Type: Spontaneous
  Country: US (occurrence: US)
  Receive Date: 20190218
  Receipt Date: 20190218
  Transmission Date: 20190418
  Serious: Yes (Hospitalization, Other)
  Sender: FDA-Public Use
  Company Number: US-BAYER-2019-031239

PATIENT
  Sex: Male

DRUGS (2)
  1. ALEVE [Suspect]
     Active Substance: NAPROXEN SODIUM
     Indication: ARTHRALGIA
     Dosage: 2 DF, QD
     Route: 048
  2. CBD OIL [Concomitant]
     Active Substance: CANNABIDIOL\HERBALS
     Indication: ARTHRALGIA

REACTIONS (4)
  - Gait inability [Recovered/Resolved]
  - Internal haemorrhage [Unknown]
  - Shock [Unknown]
  - Dizziness [Unknown]
